FAERS Safety Report 4446624-7 (Version None)
Quarter: 2004Q3

REPORT INFORMATION
  Report Type: 
  Country: None (occurrence: None)
  Receive Date: 20040910
  Receipt Date: 20040219
  Transmission Date: 20050211
  Serious: Yes (Life-Threatening, Hospitalization, Disabling)
  Sender: FDA-Public Use
  Company Number: US-MERCK-0402USA01450

PATIENT
  Age: 37 Year
  Sex: Female
  Weight: 76 kg

DRUGS (13)
  1. MIDRIN [Concomitant]
     Route: 065
     Dates: start: 20010301
  2. TRICOR [Concomitant]
     Route: 065
  3. NEURONTIN [Concomitant]
     Route: 065
     Dates: start: 20000101
  4. HYDROCHLOROTHIAZIDE [Concomitant]
     Route: 065
  5. MAXZIDE [Concomitant]
     Route: 065
     Dates: end: 20021031
  6. HYDROCODONE HYDROCHLORIDE [Concomitant]
     Route: 065
     Dates: start: 20010301
  7. LIDODERM [Concomitant]
     Route: 065
  8. ATIVAN [Concomitant]
     Route: 065
     Dates: start: 20000101, end: 20010101
  9. REMERON [Concomitant]
     Route: 065
     Dates: start: 20000101
  10. VIOXX [Suspect]
     Indication: ARTHRITIS
     Route: 048
     Dates: start: 20010301, end: 20021031
  11. VIOXX [Suspect]
     Indication: OSTEOARTHRITIS
     Route: 048
     Dates: start: 20010301, end: 20021031
  12. ZANAFLEX [Concomitant]
     Route: 065
  13. TRAZODONE HYDROCHLORIDE [Concomitant]
     Route: 065
     Dates: start: 20000101

REACTIONS (25)
  - ABDOMINAL PAIN [None]
  - ANXIETY [None]
  - BIPOLAR DISORDER [None]
  - BLOOD CHOLESTEROL INCREASED [None]
  - BLOOD TRIGLYCERIDES INCREASED [None]
  - CERVICOBRACHIAL SYNDROME [None]
  - CONDITION AGGRAVATED [None]
  - DIARRHOEA [None]
  - EMOTIONAL DISTRESS [None]
  - FATIGUE [None]
  - HYPERTENSION [None]
  - HYSTERECTOMY [None]
  - INTERVERTEBRAL DISC DEGENERATION [None]
  - MENORRHAGIA [None]
  - MENSTRUAL DISORDER [None]
  - MYOFASCIAL PAIN SYNDROME [None]
  - NECK PAIN [None]
  - NERVE COMPRESSION [None]
  - OEDEMA [None]
  - OEDEMA PERIPHERAL [None]
  - PELVIC PAIN [None]
  - RADICULITIS [None]
  - RENAL FAILURE [None]
  - RENAL FAILURE ACUTE [None]
  - TIBIA FRACTURE [None]
